FAERS Safety Report 4404755-1 (Version None)
Quarter: 2004Q3

REPORT INFORMATION
  Report Type: 
  Country: None (occurrence: None)
  Receive Date: 20040720
  Receipt Date: 20040705
  Transmission Date: 20050211
  Serious: Yes (Death, Other)
  Sender: FDA-Public Use
  Company Number: GB-2004-028507

PATIENT

DRUGS (6)
  1. CAMPATH [Suspect]
     Indication: ALLOGENIC BONE MARROW TRANSPLANTATION THERAPY
     Dosage: 20 MG/D
  2. FLUDARA [Suspect]
     Indication: ALLOGENIC BONE MARROW TRANSPLANTATION THERAPY
     Dosage: 30 MG/M2,
  3. MELPHALAN (MELPHALAN) [Concomitant]
  4. CYCLOSPORINE [Concomitant]
  5. CO-TRIMOXAZOLE (CO-TRIMOXAZOLE) [Concomitant]
  6. ACYCLOVIR [Concomitant]

REACTIONS (6)
  - ASTHENIA [None]
  - CYTOMEGALOVIRUS INFECTION [None]
  - DISEASE RECURRENCE [None]
  - GRAFT VERSUS HOST DISEASE [None]
  - GUILLAIN-BARRE SYNDROME [None]
  - RESPIRATORY FAILURE [None]
